FAERS Safety Report 18854765 (Version 1)
Quarter: 2021Q1

REPORT INFORMATION
  Report Type: Spontaneous
  Country: MX (occurrence: MX)
  Receive Date: 20210206
  Receipt Date: 20210206
  Transmission Date: 20210420
  Serious: Yes (Hospitalization, Other)
  Sender: FDA-Public Use
  Company Number: MX-GRANULES-MX-2021GRALIT00087

PATIENT
  Age: 22 Month
  Sex: Male

DRUGS (11)
  1. METRONIDAZOLE. [Interacting]
     Active Substance: METRONIDAZOLE
     Indication: FOURNIER^S GANGRENE
     Route: 065
  2. CLINDAMYCIN. [Interacting]
     Active Substance: CLINDAMYCIN
     Indication: FOURNIER^S GANGRENE
     Route: 065
  3. KETOROLAC [Interacting]
     Active Substance: KETOROLAC TROMETHAMINE
     Indication: FOURNIER^S GANGRENE
     Route: 065
  4. GENTAMICIN. [Interacting]
     Active Substance: GENTAMICIN
     Indication: ENTEROCOCCUS TEST POSITIVE
     Route: 065
  5. PARACETAMOL [Concomitant]
     Active Substance: ACETAMINOPHEN
     Indication: PYREXIA
     Route: 065
  6. FLUCONAZOLE. [Interacting]
     Active Substance: FLUCONAZOLE
     Indication: CANDIDA TEST POSITIVE
     Route: 065
  7. ACICLOVIR [Interacting]
     Active Substance: ACYCLOVIR
     Indication: FOURNIER^S GANGRENE
     Route: 065
  8. CEFOTAXIME [Interacting]
     Active Substance: CEFOTAXIME SODIUM
     Indication: FOURNIER^S GANGRENE
     Route: 065
  9. NAPROXEN. [Suspect]
     Active Substance: NAPROXEN
     Indication: PYREXIA
     Route: 065
  10. CEFIXIME. [Interacting]
     Active Substance: CEFIXIME
     Indication: FOURNIER^S GANGRENE
     Route: 065
  11. AMIKACIN. [Interacting]
     Active Substance: AMIKACIN
     Indication: FOURNIER^S GANGRENE
     Route: 065

REACTIONS (2)
  - Condition aggravated [Recovered/Resolved]
  - Fournier^s gangrene [Recovered/Resolved]
